FAERS Safety Report 26167399 (Version 1)
Quarter: 2025Q4

REPORT INFORMATION
  Report Type: Report from Study
  Country: US (occurrence: US)
  Receive Date: 20251217
  Receipt Date: 20251217
  Transmission Date: 20260117
  Serious: No
  Sender: BIOVITRUM
  Company Number: US-BIOVITRUM-2025-US-015488

PATIENT
  Age: 66 Year
  Sex: Female

DRUGS (1)
  1. KINERET [Suspect]
     Active Substance: ANAKINRA
     Indication: Pericarditis
     Dosage: DAILY
     Route: 058
     Dates: start: 20251014

REACTIONS (5)
  - Blood glucose increased [Unknown]
  - Off label use [Not Recovered/Not Resolved]
  - Alanine aminotransferase increased [Unknown]
  - Chromaturia [Unknown]
  - Liver function test increased [Unknown]
